FAERS Safety Report 7354735-1 (Version None)
Quarter: 2011Q1

REPORT INFORMATION
  Report Type: 
  Country: None (occurrence: None)
  Receive Date: 20110316
  Receipt Date: 20110304
  Transmission Date: 20110831
  Serious: Yes (Hospitalization)
  Sender: FDA-Public Use
  Company Number: US-ACTELION-A-NJ2011-45822

PATIENT

DRUGS (7)
  1. LASIX [Concomitant]
  2. DIGOXIN [Concomitant]
  3. VELETRI [Suspect]
     Indication: PULMONARY ARTERIAL HYPERTENSION
     Dosage: 165 NG/KG, PER MIN
     Route: 041
     Dates: start: 20110228
  4. TRACLEER [Suspect]
     Indication: PULMONARY ARTERIAL HYPERTENSION
     Dosage: UNK
     Route: 048
     Dates: start: 20060101
  5. SILDENAFIL [Concomitant]
  6. COUMADIN [Concomitant]
  7. ALDACTONE [Concomitant]

REACTIONS (6)
  - MIGRAINE [None]
  - COUGH [None]
  - DIARRHOEA [None]
  - VOMITING [None]
  - DIZZINESS [None]
  - HEADACHE [None]
